FAERS Safety Report 9166201 (Version 1)
Quarter: 2013Q1

REPORT INFORMATION
  Report Type: Report from Study
  Country: CA (occurrence: CA)
  Receive Date: 20130315
  Receipt Date: 20130315
  Transmission Date: 20140127
  Serious: Yes (Hospitalization, Other)
  Sender: FDA-Public Use
  Company Number: CA-ABBOTT-13P-028-1062153-00

PATIENT
  Sex: Male

DRUGS (1)
  1. LUPRON DEPOT [Suspect]
     Indication: PROSTATE CANCER
     Route: 030
     Dates: start: 20010301

REACTIONS (5)
  - Oxygen saturation decreased [Unknown]
  - Diverticulitis [Unknown]
  - Pneumonia [Unknown]
  - Pharyngo-oesophageal diverticulum [Unknown]
  - Angina pectoris [Unknown]
